FAERS Safety Report 8391837-5 (Version None)
Quarter: 2012Q2

REPORT INFORMATION
  Report Type: 
  Country: None (occurrence: None)
  Receive Date: 20120525
  Receipt Date: 20120525
  Transmission Date: 20120825
  Serious: Yes (Other)
  Sender: FDA-Public Use
  Company Number: None

PATIENT
  Age: 32 Year
  Sex: Female
  Weight: 78.9259 kg

DRUGS (2)
  1. MAXALT-MLT [Suspect]
     Indication: MIGRAINE
     Dosage: 25 MG AS NEEDED
     Dates: start: 20120423
  2. MAXALT-MLT [Suspect]
     Indication: MIGRAINE
     Dosage: 25 MG AS NEEDED
     Dates: start: 20120414

REACTIONS (1)
  - DRUG HYPERSENSITIVITY [None]
